FAERS Safety Report 13439705 (Version 1)
Quarter: 2017Q2

REPORT INFORMATION
  Report Type: Spontaneous
  Country: SE (occurrence: SE)
  Receive Date: 20170413
  Receipt Date: 20170413
  Transmission Date: 20170830
  Serious: Yes (Hospitalization)
  Sender: FDA-Public Use
  Company Number: SE-TEVA-756777ISR

PATIENT
  Age: 85 Year
  Sex: Male

DRUGS (3)
  1. SPIRONOLACTONE. [Concomitant]
     Active Substance: SPIRONOLACTONE
  2. METOPROLOL. [Suspect]
     Active Substance: METOPROLOL
  3. FURIX [Concomitant]
     Active Substance: FUROSEMIDE

REACTIONS (2)
  - Syncope [Unknown]
  - Orthostatic hypotension [Unknown]
